FAERS Safety Report 25478048 (Version 2)
Quarter: 2025Q2

REPORT INFORMATION
  Report Type: Spontaneous
  Country: US (occurrence: US)
  Receive Date: 20250625
  Receipt Date: 20250627
  Transmission Date: 20250716
  Serious: Yes (Hospitalization)
  Sender: CHIESI
  Company Number: US-CHIESI-2025CHF04279

PATIENT
  Sex: Male
  Weight: 25.5 kg

DRUGS (1)
  1. FILSUVEZ [Suspect]
     Active Substance: BIRCH TRITERPENES
     Indication: Epidermolysis bullosa
     Route: 061
     Dates: start: 20240814

REACTIONS (1)
  - Ill-defined disorder [Not Recovered/Not Resolved]
